FAERS Safety Report 8279540-3 (Version None)
Quarter: 2012Q2

REPORT INFORMATION
  Report Type: 
  Country: None (occurrence: None)
  Receive Date: 20120412
  Receipt Date: 20110622
  Transmission Date: 20120825
  Serious: No
  Sender: FDA-Public Use
  Company Number: US-ASTRAZENECA-2011SE37865

PATIENT
  Age: 69 Year
  Sex: Male

DRUGS (3)
  1. NEXIUM [Suspect]
     Route: 048
     Dates: start: 20090101
  2. NEXIUM [Suspect]
     Route: 048
  3. LISINOPRIL [Concomitant]

REACTIONS (2)
  - PALPITATIONS [None]
  - ABDOMINAL PAIN [None]
